FAERS Safety Report 20070018 (Version 1)
Quarter: 2021Q4

REPORT INFORMATION
  Report Type: Spontaneous
  Country: GB (occurrence: GB)
  Receive Date: 20211115
  Receipt Date: 20211115
  Transmission Date: 20220303
  Serious: Yes (Other)
  Sender: FDA-Public Use
  Company Number: GB-SANOFI-00851668

PATIENT
  Sex: Female

DRUGS (2)
  1. LIXISENATIDE [Suspect]
     Active Substance: LIXISENATIDE
     Dosage: UNK
     Route: 065
  2. LIXISENATIDE [Suspect]
     Active Substance: LIXISENATIDE
     Dosage: UNK
     Route: 065

REACTIONS (1)
  - Breast cancer [Unknown]
